FAERS Safety Report 6395059-9 (Version None)
Quarter: 2009Q4

REPORT INFORMATION
  Report Type: 
  Country: None (occurrence: None)
  Receive Date: 20091009
  Receipt Date: 20090930
  Transmission Date: 20100525
  Serious: Yes (Hospitalization)
  Sender: FDA-Public Use
  Company Number: US-ASTRAZENECA-2009SE11590

PATIENT
  Age: 1091 Month
  Sex: Male
  Weight: 79.4 kg

DRUGS (11)
  1. CRESTOR [Suspect]
     Indication: HYPERLIPIDAEMIA
     Route: 048
     Dates: start: 20090701, end: 20090801
  2. ATENOLOL [Concomitant]
     Indication: HYPERTENSION
     Route: 065
  3. VYTORIN [Concomitant]
  4. PLAVIX [Concomitant]
     Route: 048
  5. LASIX [Concomitant]
     Route: 048
  6. K-DUR [Concomitant]
     Route: 048
  7. SKELAXIN [Concomitant]
     Indication: MUSCLE SPASMS
     Dosage: 800 MG 1-3 DAILY
  8. FISH OIL [Concomitant]
  9. MELLARIL [Concomitant]
     Dosage: 25 MG 1/2 TABLET DAILY
  10. ASPIRIN [Concomitant]
  11. MULTI-VITAMINS [Concomitant]

REACTIONS (4)
  - ASTHENIA [None]
  - FALL [None]
  - HEAD INJURY [None]
  - RHABDOMYOLYSIS [None]
